FAERS Safety Report 5415497-8 (Version None)
Quarter: 2007Q3

REPORT INFORMATION
  Report Type: 
  Country: None (occurrence: None)
  Receive Date: 20070815
  Receipt Date: 20070804
  Transmission Date: 20080115
  Serious: Yes (Hospitalization)
  Sender: FDA-Public Use
  Company Number: GB-ROCHE-511188

PATIENT
  Age: 24 Year
  Sex: Female
  Weight: 95 kg

DRUGS (1)
  1. XENICAL [Suspect]
     Indication: OBESITY
     Route: 048
     Dates: start: 20070717, end: 20070725

REACTIONS (2)
  - CHEST PAIN [None]
  - DYSPNOEA [None]
